FAERS Safety Report 9287351 (Version 1)
Quarter: 2013Q2

REPORT INFORMATION
  Report Type: Spontaneous
  Country: US (occurrence: US)
  Receive Date: 20130514
  Receipt Date: 20130514
  Transmission Date: 20140414
  Serious: Yes (Hospitalization)
  Sender: FDA-Public Use
  Company Number: US-AMGEN-USASP2013033367

PATIENT
  Age: 34 Year
  Sex: Female

DRUGS (1)
  1. ENBREL [Suspect]
     Indication: PSORIASIS
     Dosage: UNK
     Dates: start: 201107, end: 201212

REACTIONS (3)
  - Full blood count decreased [Recovered/Resolved]
  - Nasopharyngitis [Recovered/Resolved]
  - Hepatitis C [Recovered/Resolved]
